FAERS Safety Report 4421783-0 (Version None)
Quarter: 2004Q3

REPORT INFORMATION
  Report Type: 
  Country: None (occurrence: None)
  Receive Date: 20040806
  Receipt Date: 20040721
  Transmission Date: 20050211
  Serious: Yes (Life-Threatening, Hospitalization)
  Sender: FDA-Public Use
  Company Number: US_0407104407

PATIENT
  Age: 52 Year
  Sex: Female
  Weight: 51 kg

DRUGS (2)
  1. GEMCITABINE HYDROCHLORIDE-IV (GEMCITABINE) [Suspect]
     Indication: ADENOCARCINOMA PANCREAS
     Dosage: 1275 MG/M2 OTHER
     Route: 042
     Dates: start: 20040112
  2. INTRON A [Suspect]
     Indication: ADENOCARCINOMA PANCREAS
     Route: 042

REACTIONS (15)
  - ASCITES [None]
  - BRONCHOALVEOLAR LAVAGE ABNORMAL [None]
  - CHILLS [None]
  - CLOSTRIDIUM COLITIS [None]
  - DIARRHOEA [None]
  - EJECTION FRACTION DECREASED [None]
  - GENERALISED OEDEMA [None]
  - HYPOTENSION [None]
  - HYPOXIA [None]
  - MYOCARDIAL INFARCTION [None]
  - PLEURAL EFFUSION [None]
  - PULMONARY HYPERTENSION [None]
  - PYREXIA [None]
  - RESPIRATORY FAILURE [None]
  - SEPSIS [None]
